FAERS Safety Report 8264192-9 (Version None)
Quarter: 2012Q2

REPORT INFORMATION
  Report Type: 
  Country: None (occurrence: None)
  Receive Date: 20120403
  Receipt Date: 20120320
  Transmission Date: 20120825
  Serious: Yes (Other)
  Sender: FDA-Public Use
  Company Number: B0791936A

PATIENT
  Age: 31 Year
  Sex: Female

DRUGS (3)
  1. CEPHALEXIN [Suspect]
     Indication: T-CELL LYMPHOMA
     Dosage: UNK / UNK / ORAL
     Route: 048
  2. CLINDAMYCIN [Suspect]
     Indication: T-CELL LYMPHOMA
     Dosage: UNK / UNK / ORAL
     Route: 048
  3. PREDNISONE [Suspect]
     Indication: T-CELL LYMPHOMA
     Dosage: 1 MG/KG/DAY / UNK / ORAL
     Route: 048

REACTIONS (10)
  - PANNICULITIS [None]
  - MATERNAL EXPOSURE DURING PREGNANCY [None]
  - ALANINE AMINOTRANSFERASE INCREASED [None]
  - LEUKOPENIA [None]
  - PREMATURE RUPTURE OF MEMBRANES [None]
  - MICROCYTIC ANAEMIA [None]
  - BLOOD LACTATE DEHYDROGENASE INCREASED [None]
  - SUBCUTANEOUS NODULE [None]
  - T-CELL LYMPHOMA [None]
  - ASPARTATE AMINOTRANSFERASE INCREASED [None]
